FAERS Safety Report 8562310-6 (Version None)
Quarter: 2012Q3

REPORT INFORMATION
  Report Type: 
  Country: None (occurrence: None)
  Receive Date: 20120802
  Receipt Date: 20120712
  Transmission Date: 20120928
  Serious: No
  Sender: FDA-Public Use
  Company Number: US-AMGEN-USASP2012043457

PATIENT
  Age: 49 Year
  Sex: Female

DRUGS (1)
  1. ENBREL [Suspect]
     Indication: ANKYLOSING SPONDYLITIS
     Dosage: UNK
     Dates: start: 20080320

REACTIONS (10)
  - VOMITING [None]
  - LETHARGY [None]
  - DEMENTIA [None]
  - ASTHENIA [None]
  - DIZZINESS [None]
  - VULVOVAGINAL MYCOTIC INFECTION [None]
  - NAUSEA [None]
  - DIARRHOEA [None]
  - WEIGHT DECREASED [None]
  - PNEUMONIA [None]
